FAERS Safety Report 4909421-1 (Version None)
Quarter: 2006Q1

REPORT INFORMATION
  Report Type: 
  Country: None (occurrence: None)
  Receive Date: 20060210
  Receipt Date: 20060210
  Transmission Date: 20060701
  Serious: Yes (Hospitalization)
  Sender: FDA-Public Use
  Company Number: None

PATIENT
  Sex: Male
  Weight: 77.3 kg

DRUGS (2)
  1. WARFARIN SODIUM [Suspect]
     Indication: ATRIAL FIBRILLATION
     Dosage: 10 MG DAILY EXCEPT 15MG TRSAT   DAILY PO
     Route: 048
  2. FLUCONAZOLE [Suspect]
     Indication: FUNGAL SKIN INFECTION
     Dosage: 200MG  BID  PO
     Route: 048
     Dates: start: 20051223, end: 20051230

REACTIONS (2)
  - INTERNATIONAL NORMALISED RATIO INCREASED [None]
  - RASH PRURITIC [None]
